FAERS Safety Report 11409246 (Version 1)
Quarter: 2015Q3

REPORT INFORMATION
  Report Type: Spontaneous
  Country: AU (occurrence: None)
  Receive Date: 20150820
  Receipt Date: 20150820
  Transmission Date: 20151125
  Serious: Yes (Other)
  Sender: FDA-Public Use
  Company Number: 2015HINLIT0677

PATIENT
  Age: 61 Year
  Sex: Male

DRUGS (1)
  1. LITHIUM. [Suspect]
     Active Substance: LITHIUM
     Indication: BIPOLAR DISORDER

REACTIONS (6)
  - Bifascicular block [None]
  - Bradycardia [None]
  - Exercise tolerance decreased [None]
  - Chronotropic incompetence [None]
  - Sinus node dysfunction [None]
  - Electrocardiogram QRS complex prolonged [None]
